FAERS Safety Report 9238078 (Version 1)
Quarter: 2013Q1

REPORT INFORMATION
  Report Type: Spontaneous
  Country: US (occurrence: None)
  Receive Date: 20121106
  Receipt Date: 20121106
  Transmission Date: 20140127
  Serious: No
  Sender: FDA-Public Use
  Company Number: 1000038285

PATIENT
  Age: 74 Year
  Sex: Female

DRUGS (3)
  1. DALIRESP [Suspect]
     Indication: CHRONIC OBSTRUCTIVE PULMONARY DISEASE
     Dosage: (500 MCG, 1 IN 1 D)
     Route: 048
     Dates: start: 201208
  2. SPIRIVA (TIOTROPIUM BROMIDE) (TIOTROPIUM BROMIDE) [Concomitant]
  3. ADVAIR (SERETIDE) (SERETIDE) [Concomitant]

REACTIONS (3)
  - Cough [None]
  - Increased upper airway secretion [None]
  - Insomnia [None]
